FAERS Safety Report 5150946-4 (Version None)
Quarter: 2006Q4

REPORT INFORMATION
  Report Type: 
  Country: None (occurrence: None)
  Receive Date: 20061115
  Receipt Date: 20061107
  Transmission Date: 20070319
  Serious: Yes (Hospitalization)
  Sender: FDA-Public Use
  Company Number: JP-JNJFOC-20061001537

PATIENT
  Sex: Male
  Weight: 67 kg

DRUGS (17)
  1. REMICADE [Suspect]
     Route: 042
  2. REMICADE [Suspect]
     Dosage: UNSPECIFIED DATE
     Route: 042
  3. REMICADE [Suspect]
     Dosage: UNSPECIFIED DATE
     Route: 042
  4. REMICADE [Suspect]
     Dosage: UNSPECIFIED DATE
     Route: 042
  5. REMICADE [Suspect]
     Dosage: UNSPECIFIED DATE
     Route: 042
  6. REMICADE [Suspect]
     Indication: RHEUMATOID ARTHRITIS
     Dosage: UNSPECIFIED DATE
     Route: 042
  7. PREDONINE [Suspect]
     Indication: DRUG USE FOR UNKNOWN INDICATION
     Route: 048
  8. RHEUMATREX [Suspect]
     Indication: RHEUMATOID ARTHRITIS
     Route: 048
  9. HARNAL [Suspect]
     Indication: DRUG USE FOR UNKNOWN INDICATION
     Route: 048
  10. DEPAS [Suspect]
     Indication: DRUG USE FOR UNKNOWN INDICATION
     Route: 048
  11. MUCODYNE [Suspect]
     Indication: DRUG USE FOR UNKNOWN INDICATION
     Route: 048
  12. AZULFIDINE EN-TABS [Concomitant]
     Indication: RHEUMATOID ARTHRITIS
     Route: 048
  13. MOHRUS TAPE [Concomitant]
     Indication: RHEUMATOID ARTHRITIS
  14. FOLIAMIN [Concomitant]
     Route: 048
  15. MUCOSTA [Concomitant]
     Route: 048
  16. MAGLAX [Concomitant]
     Route: 048
  17. BOIOGITO [Concomitant]
     Route: 048

REACTIONS (2)
  - ERYTHEMA [None]
  - RASH [None]
